FAERS Safety Report 5298774-3 (Version None)
Quarter: 2007Q2

REPORT INFORMATION
  Report Type: 
  Country: None (occurrence: None)
  Receive Date: 20070417
  Receipt Date: 20070416
  Transmission Date: 20071010
  Serious: Yes (Hospitalization, Other)
  Sender: FDA-Public Use
  Company Number: US-BRISTOL-MYERS SQUIBB COMPANY-13748868

PATIENT
  Age: 57 Year
  Sex: Female

DRUGS (3)
  1. CARBOPLATIN [Suspect]
     Indication: OVARIAN CANCER RECURRENT
     Route: 042
     Dates: start: 20070330, end: 20070330
  2. LEUKINE [Suspect]
     Indication: OVARIAN CANCER RECURRENT
     Route: 058
     Dates: start: 20070331, end: 20070406
  3. INTERFERON GAMMA [Suspect]
     Indication: OVARIAN CANCER RECURRENT
     Route: 058
     Dates: start: 20070406, end: 20070406

REACTIONS (3)
  - BLOOD CHOLESTEROL INCREASED [None]
  - CHEST PAIN [None]
  - MYOCARDIAL INFARCTION [None]
